FAERS Safety Report 7631048-1 (Version None)
Quarter: 2011Q3

REPORT INFORMATION
  Report Type: 
  Country: None (occurrence: None)
  Receive Date: 20110725
  Receipt Date: 20110714
  Transmission Date: 20111222
  Serious: Yes (Hospitalization)
  Sender: FDA-Public Use
  Company Number: US-BRISTOL-MYERS SQUIBB COMPANY-15905904

PATIENT
  Age: 86 Year
  Sex: Female

DRUGS (5)
  1. NYSTATIN [Suspect]
     Dates: start: 20110405, end: 20110408
  2. APIXABAN [Suspect]
     Indication: THROMBOSIS PROPHYLAXIS
     Route: 048
     Dates: start: 20100716
  3. LISINOPRIL [Concomitant]
     Dates: start: 20050428, end: 20110405
  4. TAMIFLU [Suspect]
     Dates: start: 20110327, end: 20110405
  5. COREG [Concomitant]
     Route: 048
     Dates: start: 20050428

REACTIONS (2)
  - PNEUMONIA INFLUENZAL [None]
  - DERMATITIS [None]
